FAERS Safety Report 8642984 (Version 3)
Quarter: 2013Q3

REPORT INFORMATION
  Report Type: Spontaneous
  Country: US (occurrence: None)
  Receive Date: 20120620
  Receipt Date: 20130815
  Transmission Date: 20140515
  Serious: Yes (Hospitalization, Other)
  Sender: FDA-Public Use
  Company Number: ADR-2012-00930

PATIENT
  Sex: Male

DRUGS (2)
  1. BACLOFEN [Suspect]
     Indication: MUSCLE SPASTICITY
     Dosage: 274.8 MCG/DAY
  2. BACLOFEN [Suspect]
     Indication: CEREBRAL PALSY
     Dosage: 274.8 MCG/DAY

REACTIONS (7)
  - Infection [None]
  - Pyrexia [None]
  - Swelling [None]
  - Erythema [None]
  - Post procedural infection [None]
  - Device damage [None]
  - Central nervous system infection [None]
